FAERS Safety Report 20906073 (Version 1)
Quarter: 2022Q2

REPORT INFORMATION
  Report Type: Spontaneous
  Country: US (occurrence: US)
  Receive Date: 20220602
  Receipt Date: 20220602
  Transmission Date: 20220721
  Serious: No
  Sender: FDA-Public Use
  Company Number: US-COLLEGIUM PHARMACEUTICAL, INC.-2022CGM00001

PATIENT
  Age: 64 Year
  Sex: Female

DRUGS (2)
  1. XTAMPZA ER [Suspect]
     Active Substance: OXYCODONE
     Indication: Pain
     Dosage: UNK
     Route: 048
  2. XTAMPZA ER [Suspect]
     Active Substance: OXYCODONE
     Dosage: UNK
     Route: 048
     Dates: start: 20211231

REACTIONS (7)
  - Dyspepsia [Not Recovered/Not Resolved]
  - Decreased activity [Not Recovered/Not Resolved]
  - Product physical consistency issue [Unknown]
  - Abdominal pain upper [Not Recovered/Not Resolved]
  - Nausea [Not Recovered/Not Resolved]
  - Vomiting [Not Recovered/Not Resolved]
  - Drug ineffective [Recovered/Resolved]

NARRATIVE: CASE EVENT DATE: 20211231
